FAERS Safety Report 8369306-8 (Version None)
Quarter: 2012Q2

REPORT INFORMATION
  Report Type: 
  Country: None (occurrence: None)
  Receive Date: 20120518
  Receipt Date: 20120514
  Transmission Date: 20120825
  Serious: Yes (Other)
  Sender: FDA-Public Use
  Company Number: PHFR2012GB002936

PATIENT
  Age: 71 Year
  Sex: Female

DRUGS (2)
  1. MIACALCIN [Suspect]
     Indication: MUSCULOSKELETAL PAIN
     Dosage: 200 IU, UNK
     Route: 045
  2. NEURONTIN [Concomitant]
     Dosage: UNK

REACTIONS (4)
  - BLINDNESS UNILATERAL [None]
  - SUICIDAL IDEATION [None]
  - GLAUCOMA [None]
  - RENAL FAILURE [None]
